FAERS Safety Report 13303223 (Version 1)
Quarter: 2017Q1

REPORT INFORMATION
  Report Type: Spontaneous
  Country: IT (occurrence: IT)
  Receive Date: 20170307
  Receipt Date: 20170307
  Transmission Date: 20170428
  Serious: Yes (Hospitalization)
  Sender: FDA-Public Use
  Company Number: IT-SA-2017SA032648

PATIENT
  Age: 72 Year
  Sex: Male

DRUGS (1)
  1. SOLOSA [Suspect]
     Active Substance: GLIMEPIRIDE
     Dosage: DOSE:1 UNIT(S)
     Route: 048
     Dates: start: 20160808, end: 20160808

REACTIONS (4)
  - Asthenia [Unknown]
  - Anaemia [Unknown]
  - Hypoglycaemia [Recovered/Resolved]
  - Wrong drug administered [Unknown]

NARRATIVE: CASE EVENT DATE: 20160809
